FAERS Safety Report 7944701-7 (Version None)
Quarter: 2011Q4

REPORT INFORMATION
  Report Type: 
  Country: None (occurrence: None)
  Receive Date: 20111114
  Receipt Date: 20110901
  Transmission Date: 20120403
  Serious: No
  Sender: FDA-Public Use
  Company Number: 1000007955

PATIENT
  Age: 57 Year
  Sex: Female

DRUGS (5)
  1. DIOVAN [Concomitant]
  2. OXYCODONE HCL [Concomitant]
  3. SAVELLA [Suspect]
     Indication: FIBROMYALGIA
     Dosage: 12.5 MG (12.5 MG, 1 IN 1 D), ORAL ; 25 MG (12.5 MG, 2 IN 1 D), ORAL
     Route: 048
     Dates: start: 20090724, end: 20090725
  4. ENBREL [Concomitant]
  5. SAVELLA [Suspect]
     Indication: FIBROMYALGIA
     Dosage: 50 MG (25 MG, 2 IN 1 D), ORAL
     Route: 048
     Dates: start: 20090728, end: 20090801

REACTIONS (9)
  - BLOOD PRESSURE INCREASED [None]
  - PALPITATIONS [None]
  - NAUSEA [None]
  - HYPERHIDROSIS [None]
  - MUSCULAR WEAKNESS [None]
  - FATIGUE [None]
  - CONFUSIONAL STATE [None]
  - MALAISE [None]
  - ASTHENIA [None]
